FAERS Safety Report 21494881 (Version 2)
Quarter: 2022Q4

REPORT INFORMATION
  Report Type: Report from Study
  Country: ES (occurrence: ES)
  Receive Date: 20221022
  Receipt Date: 20221102
  Transmission Date: 20230113
  Serious: Yes (Other)
  Sender: FDA-Public Use
  Company Number: ES-ABBVIE-4140736

PATIENT
  Age: 74 Year
  Sex: Male

DRUGS (3)
  1. CARBIDOPA\LEVODOPA [Suspect]
     Active Substance: CARBIDOPA\LEVODOPA
     Indication: Parkinson^s disease
     Dosage: LAST ADMIN DATE: 2022
     Route: 050
     Dates: start: 20210621
  2. CARBIDOPA\LEVODOPA [Suspect]
     Active Substance: CARBIDOPA\LEVODOPA
     Dosage: LAST ADMIN DATE: 2022?CONTINUOUS DOSE BY 0.2ML/H AND THE EXTRA DOSE BY 0.5ML.
     Route: 050
     Dates: end: 202210
  3. CARBIDOPA\LEVODOPA [Suspect]
     Active Substance: CARBIDOPA\LEVODOPA
     Dosage: DECREASE THE CONTINUOUS DOSE AND THE EXTRA DOSE
     Route: 050
     Dates: start: 202210

REACTIONS (11)
  - Feeling abnormal [Not Recovered/Not Resolved]
  - Mobility decreased [Recovering/Resolving]
  - Therapeutic product effect incomplete [Unknown]
  - Pain [Not Recovered/Not Resolved]
  - Dyskinesia [Not Recovered/Not Resolved]
  - Dopamine dysregulation syndrome [Unknown]
  - Compulsive shopping [Not Recovered/Not Resolved]
  - Speech disorder [Not Recovered/Not Resolved]
  - Impulse-control disorder [Not Recovered/Not Resolved]
  - Freezing phenomenon [Not Recovered/Not Resolved]
  - Back pain [Unknown]

NARRATIVE: CASE EVENT DATE: 20220701
